FAERS Safety Report 19539285 (Version 1)
Quarter: 2021Q3

REPORT INFORMATION
  Report Type: Report from Study
  Country: US (occurrence: US)
  Receive Date: 20210713
  Receipt Date: 20210713
  Transmission Date: 20211014
  Serious: Yes (Hospitalization, Other)
  Sender: FDA-Public Use
  Company Number: US-TRAVERE THERAPEUTICS, INC.-2021RTN00099

PATIENT
  Age: 3 Year
  Sex: Female

DRUGS (1)
  1. CHOLIC ACID [Suspect]
     Active Substance: CHOLIC ACID
     Indication: INBORN ERROR IN PRIMARY BILE ACID SYNTHESIS
     Dosage: 150 MG, 1X/DAY
     Dates: start: 20181213

REACTIONS (2)
  - Gastrointestinal haemorrhage [Unknown]
  - Urinary tract infection [Unknown]

NARRATIVE: CASE EVENT DATE: 202105
